FAERS Safety Report 19393210 (Version 5)
Quarter: 2024Q3

REPORT INFORMATION
  Report Type: Spontaneous
  Country: ES (occurrence: ES)
  Receive Date: 20210609
  Receipt Date: 20240930
  Transmission Date: 20241016
  Serious: Yes (Hospitalization, Other)
  Sender: BIOGEN
  Company Number: ES-BIOGEN-2021BI01017804

PATIENT
  Age: 13 Year
  Sex: Female
  Weight: 32 kg

DRUGS (13)
  1. SPINRAZA [Suspect]
     Active Substance: NUSINERSEN
     Indication: Spinal muscular atrophy
     Dosage: 24 MONTHS OF TREATMENT
     Route: 050
     Dates: start: 201805, end: 202005
  2. SPINRAZA [Suspect]
     Active Substance: NUSINERSEN
     Dosage: RESTARTED 3 AND A HALF MONTHS AFTER WITHDRAWAL OF RISDIPLAM. CURRENTLY 2 DOSES.
     Route: 050
  3. SPINRAZA [Suspect]
     Active Substance: NUSINERSEN
     Route: 050
     Dates: start: 20180706, end: 20200513
  4. SPINRAZA [Suspect]
     Active Substance: NUSINERSEN
     Route: 050
     Dates: start: 20210505
  5. RISDIPLAM [Suspect]
     Active Substance: RISDIPLAM
     Indication: Spinal muscular atrophy
     Route: 050
  6. RISDIPLAM [Suspect]
     Active Substance: RISDIPLAM
     Route: 050
     Dates: start: 20201203, end: 20210118
  7. RISDIPLAM [Suspect]
     Active Substance: RISDIPLAM
     Route: 050
     Dates: start: 20210202, end: 20210218
  8. CHOLECALCIFEROL [Concomitant]
     Active Substance: CHOLECALCIFEROL
     Indication: Product used for unknown indication
     Route: 050
  9. ALBUTEROL [Concomitant]
     Active Substance: ALBUTEROL
     Indication: Spinal muscular atrophy
     Route: 050
  10. RIFAMPIN [Concomitant]
     Active Substance: RIFAMPIN
     Indication: Product used for unknown indication
     Route: 050
  11. CLOXACILLIN [Concomitant]
     Active Substance: CLOXACILLIN
     Indication: Product used for unknown indication
     Dosage: DURING 6 WEEKS
     Route: 050
  12. CLOXACILLIN [Concomitant]
     Active Substance: CLOXACILLIN
     Route: 050
  13. CEFUROXIME [Concomitant]
     Active Substance: CEFUROXIME
     Indication: Product used for unknown indication
     Route: 050

REACTIONS (4)
  - Cutaneous vasculitis [Recovered/Resolved]
  - Staphylococcal osteomyelitis [Unknown]
  - Arthritis bacterial [Unknown]
  - Upper respiratory tract infection [Unknown]

NARRATIVE: CASE EVENT DATE: 20200701
